FAERS Safety Report 24098079 (Version 3)
Quarter: 2024Q4

REPORT INFORMATION
  Report Type: Report from Study
  Country: UY (occurrence: UY)
  Receive Date: 20240716
  Receipt Date: 20241023
  Transmission Date: 20250114
  Serious: Yes (Hospitalization, Other)
  Sender: ABBVIE
  Company Number: UY-ABBVIE-5836922

PATIENT
  Sex: Female

DRUGS (2)
  1. RINVOQ [Suspect]
     Active Substance: UPADACITINIB
     Indication: Rheumatoid arthritis
     Dosage: FORM STRENGTH: 15 MILLIGRAM
     Route: 048
     Dates: start: 20240119
  2. GENTAMICIN [Suspect]
     Active Substance: GENTAMICIN
     Indication: Urinary tract infection
     Route: 065

REACTIONS (11)
  - Toxicity to various agents [Recovered/Resolved with Sequelae]
  - Escherichia urinary tract infection [Recovered/Resolved]
  - Speech disorder [Unknown]
  - Urinary tract infection [Not Recovered/Not Resolved]
  - Balance disorder [Unknown]
  - Mobility decreased [Unknown]
  - Gastrooesophageal reflux disease [Unknown]
  - Cerebrovascular accident [Unknown]
  - Pain [Not Recovered/Not Resolved]
  - Hepatic haemorrhage [Unknown]
  - Rheumatoid arthritis [Not Recovered/Not Resolved]

NARRATIVE: CASE EVENT DATE: 20240101
